FAERS Safety Report 11638168 (Version 2)
Quarter: 2015Q4

REPORT INFORMATION
  Report Type: Spontaneous
  Country: US (occurrence: US)
  Receive Date: 20151016
  Receipt Date: 20151221
  Transmission Date: 20160304
  Serious: Yes (Other)
  Sender: FDA-Public Use
  Company Number: US-UNICHEM LABORATORIES LIMITED-UCM201510-000844

PATIENT
  Sex: Female
  Weight: 89.35 kg

DRUGS (34)
  1. METAXALONE. [Concomitant]
     Active Substance: METAXALONE
  2. ADVIL [Concomitant]
     Active Substance: IBUPROFEN
  3. FLUTICASONE PROPIONATE. [Concomitant]
     Active Substance: FLUTICASONE PROPIONATE
  4. MUPIROCIN. [Concomitant]
     Active Substance: MUPIROCIN
  5. METOPROLOL TARTRATE. [Concomitant]
     Active Substance: METOPROLOL TARTRATE
  6. OXYCODONE HYDROCHLORIDE. [Concomitant]
     Active Substance: OXYCODONE HYDROCHLORIDE
     Indication: PAIN
  7. DICLOFENAC SODIUM DR [Concomitant]
     Active Substance: DICLOFENAC SODIUM
  8. CHLORTHALIDONE. [Concomitant]
     Active Substance: CHLORTHALIDONE
  9. TERCONAZOLE CREAM [Concomitant]
  10. NAPROXEN. [Concomitant]
     Active Substance: NAPROXEN
  11. AMLODIPINE BESYLATE. [Concomitant]
     Active Substance: AMLODIPINE BESYLATE
  12. TERCONAZOLE. [Concomitant]
     Active Substance: TERCONAZOLE
     Route: 067
  13. LISINOPRIL. [Concomitant]
     Active Substance: LISINOPRIL
  14. OXYCODONE-ACETAMINOPHEN [Concomitant]
     Active Substance: ACETAMINOPHEN\OXYCODONE HYDROCHLORIDE
  15. CYCLOBENZAPRINE HCL [Concomitant]
     Active Substance: CYCLOBENZAPRINE HYDROCHLORIDE
     Indication: PAIN IN JAW
     Route: 048
  16. HYDROCODONE BITARTRATE AND ACETAMINOPHEN [Concomitant]
     Active Substance: ACETAMINOPHEN\HYDROCODONE BITARTRATE
  17. PREDNISONE. [Concomitant]
     Active Substance: PREDNISONE
  18. CLOTRIMAZOLE-BETAMETHASON [Concomitant]
  19. FLUCONAZOLE. [Concomitant]
     Active Substance: FLUCONAZOLE
  20. BUPROPION HCL XL [Concomitant]
     Active Substance: BUPROPION HYDROCHLORIDE
  21. HYDROCHLOROTHIAZIDE. [Suspect]
     Active Substance: HYDROCHLOROTHIAZIDE
     Dates: start: 200802, end: 201507
  22. METRONIDAZOLE. [Concomitant]
     Active Substance: METRONIDAZOLE
  23. METRONIDAZOLE VAGINAL [Concomitant]
     Active Substance: METRONIDAZOLE
  24. VALACYCLOVIR HCL [Concomitant]
     Active Substance: VALACYCLOVIR HYDROCHLORIDE
  25. FLUCONAZOLE. [Concomitant]
     Active Substance: FLUCONAZOLE
  26. TRAMADOL HCL EXTENDED RELEASE [Concomitant]
     Indication: PAIN
  27. PERMETHRIN. [Concomitant]
     Active Substance: PERMETHRIN
  28. LORAZEPAM. [Concomitant]
     Active Substance: LORAZEPAM
  29. LORATADINE. [Concomitant]
     Active Substance: LORATADINE
  30. HYDROCORTISONE. [Concomitant]
     Active Substance: HYDROCORTISONE
  31. TRAMADOL HCL [Concomitant]
     Active Substance: TRAMADOL HYDROCHLORIDE
  32. MORPHINE SULFATE ER [Concomitant]
     Active Substance: MORPHINE SULFATE
     Indication: PAIN
  33. PREDNISONE. [Concomitant]
     Active Substance: PREDNISONE
  34. METOPROLOL TARTRATE. [Concomitant]
     Active Substance: METOPROLOL TARTRATE

REACTIONS (9)
  - Blood pressure inadequately controlled [Unknown]
  - Borderline glaucoma [Unknown]
  - Menorrhagia [Unknown]
  - Peripheral swelling [Unknown]
  - Fatigue [Unknown]
  - Cutis laxa [Unknown]
  - Cataract [Unknown]
  - Contusion [Unknown]
  - Weight increased [Unknown]
